FAERS Safety Report 22151663 (Version 1)
Quarter: 2023Q1

REPORT INFORMATION
  Report Type: Report from Study
  Country: US (occurrence: US)
  Receive Date: 20230329
  Receipt Date: 20230329
  Transmission Date: 20230418
  Serious: Yes (Other)
  Sender: FDA-Public Use
  Company Number: US-ABBVIE-4706497

PATIENT
  Sex: Female

DRUGS (1)
  1. RINVOQ [Suspect]
     Active Substance: UPADACITINIB
     Indication: Psoriatic arthropathy
     Route: 048

REACTIONS (9)
  - Colectomy [Unknown]
  - Diverticulitis [Unknown]
  - Gastrooesophageal reflux disease [Unknown]
  - Nephropathy [Unknown]
  - Pain [Unknown]
  - Gastrointestinal injury [Unknown]
  - Abdominal distension [Unknown]
  - Eructation [Unknown]
  - Procedural pain [Unknown]

NARRATIVE: CASE EVENT DATE: 20220101
